FAERS Safety Report 21186577 (Version 1)
Quarter: 2022Q3

REPORT INFORMATION
  Report Type: Spontaneous
  Country: US (occurrence: None)
  Receive Date: 20220808
  Receipt Date: 20220808
  Transmission Date: 20221027
  Serious: No
  Sender: FDA-Public Use
  Company Number: None

PATIENT
  Age: 78 Year
  Sex: Female

DRUGS (1)
  1. METHOTREXATE [Suspect]
     Active Substance: METHOTREXATE
     Dosage: OTHER FREQUENCY : UNKNOWN;?
     Route: 042

REACTIONS (3)
  - Confusional state [None]
  - Feeding disorder [None]
  - Fall [None]

NARRATIVE: CASE EVENT DATE: 20220727
